FAERS Safety Report 5454068-4 (Version None)
Quarter: 2007Q3

REPORT INFORMATION
  Report Type: 
  Country: None (occurrence: None)
  Receive Date: 20070917
  Receipt Date: 20070904
  Transmission Date: 20080115
  Serious: Yes (Congenital Anomaly)
  Sender: FDA-Public Use
  Company Number: US-PFIZER INC-2007072104

PATIENT
  Sex: Female
  Weight: 0.92 kg

DRUGS (7)
  1. NELFINAVIR MESILATE [Suspect]
     Indication: HIV INFECTION
     Route: 065
  2. ABACAVIR [Suspect]
  3. DIDANOSINE [Suspect]
  4. 3TC [Suspect]
  5. NEVIRAPINE [Suspect]
  6. SAQUINAVIR [Suspect]
  7. AZT [Suspect]

REACTIONS (1)
  - JOINT DISLOCATION [None]
